FAERS Safety Report 8419402-1 (Version None)
Quarter: 2012Q2

REPORT INFORMATION
  Report Type: 
  Country: None (occurrence: None)
  Receive Date: 20120607
  Receipt Date: 20120531
  Transmission Date: 20120825
  Serious: Yes (Other)
  Sender: FDA-Public Use
  Company Number: US-GLAXOSMITHKLINE-A0889149A

PATIENT
  Age: 59 Year
  Sex: Female

DRUGS (1)
  1. IMITREX [Suspect]
     Indication: PRODUCT USED FOR UNKNOWN INDICATION
     Dosage: 100MG AS DIRECTED
     Route: 048

REACTIONS (4)
  - HEADACHE [None]
  - DRUG DEPENDENCE [None]
  - VOMITING [None]
  - DEHYDRATION [None]
